FAERS Safety Report 8514749-2 (Version None)
Quarter: 2012Q3

REPORT INFORMATION
  Report Type: 
  Country: None (occurrence: None)
  Receive Date: 20120711
  Receipt Date: 20120711
  Transmission Date: 20120928
  Serious: Yes (Other)
  Sender: FDA-Public Use
  Company Number: None

PATIENT
  Age: 56 Year
  Sex: Female
  Weight: 85.2762 kg

DRUGS (2)
  1. CYMBALTA [Suspect]
     Indication: DEPRESSION
     Dosage: 1 CAPSULE 1 A DAY BY MOUTH
     Route: 048
     Dates: start: 20111201, end: 20120704
  2. CYMBALTA [Suspect]
     Indication: PAIN
     Dosage: 1 CAPSULE 1 A DAY BY MOUTH
     Route: 048
     Dates: start: 20111201, end: 20120704

REACTIONS (8)
  - NAUSEA [None]
  - MALAISE [None]
  - DECREASED APPETITE [None]
  - DIARRHOEA [None]
  - CHILLS [None]
  - INSOMNIA [None]
  - HYPERHIDROSIS [None]
  - DIABETES MELLITUS INADEQUATE CONTROL [None]
